FAERS Safety Report 4474867-5 (Version None)
Quarter: 2004Q4

REPORT INFORMATION
  Report Type: 
  Country: None (occurrence: None)
  Receive Date: 20041012
  Receipt Date: 20040927
  Transmission Date: 20050328
  Serious: Yes (Hospitalization)
  Sender: FDA-Public Use
  Company Number: 2004070496

PATIENT
  Age: 85 Year
  Sex: Male

DRUGS (7)
  1. VIBRAMYCIN [Suspect]
     Indication: LISTERIA SEPSIS
     Dosage: 100 MG (100 MG, 1 IN 1 D), ORAL
     Route: 048
     Dates: start: 20040522, end: 20040622
  2. ACETAMINOPHEN [Concomitant]
  3. LANSOPRAZOLE [Concomitant]
  4. ATENOLOL [Concomitant]
  5. MODURETIC ^MSD^ (AMILORIDE HYDROCHLORIDE, HYDROCHLOROTHIAZIDE) [Concomitant]
  6. ASPIRIN [Concomitant]
  7. ZOLPIDEM TARTRATE [Concomitant]

REACTIONS (6)
  - ACID FAST STAIN POSITIVE [None]
  - GRANULOMA [None]
  - HEPATITIS A POSITIVE [None]
  - JAUNDICE CHOLESTATIC [None]
  - STAPHYLOCOCCAL INFECTION [None]
  - STREPTOCOCCAL INFECTION [None]
